FAERS Safety Report 16108641 (Version 1)
Quarter: 2019Q1

REPORT INFORMATION
  Report Type: Other
  Country: ES (occurrence: ES)
  Receive Date: 20190323
  Receipt Date: 20190323
  Transmission Date: 20190418
  Serious: Yes (Other)
  Sender: FDA-Public Use
  Company Number: ES-APOTEX-2019AP009695

PATIENT
  Age: 7 Month
  Sex: Female

DRUGS (6)
  1. AMLODIPINE [Interacting]
     Active Substance: AMLODIPINE BESYLATE
     Indication: HYPERTENSION
     Dosage: 1 MG, Q.12H
     Route: 048
     Dates: start: 20170703
  2. ENALAPRIL [Interacting]
     Active Substance: ENALAPRIL
     Indication: HYPERTENSION
     Dosage: 1 MG, QD
     Route: 048
     Dates: start: 20170711, end: 20170714
  3. FOSCARNET [Interacting]
     Active Substance: FOSCARNET
     Indication: CYTOMEGALOVIRUS INFECTION
     Dosage: 300 MG, TID
     Route: 042
     Dates: start: 20170710, end: 20170713
  4. FUROSEMIDE. [Suspect]
     Active Substance: FUROSEMIDE
     Indication: OEDEMA
     Dosage: 3 MG, Q.4H.
     Route: 042
     Dates: start: 20170710, end: 20170713
  5. VANCOMICINA                        /00314401/ [Interacting]
     Active Substance: VANCOMYCIN
     Indication: INFECTION
     Dosage: 70 MG, TID
     Route: 042
     Dates: start: 20170704, end: 20170711
  6. ESPIRONOLACTONA [Interacting]
     Active Substance: SPIRONOLACTONE
     Indication: HYPERTENSION
     Dosage: 10 MG, Q.12H
     Route: 048
     Dates: start: 20170704

REACTIONS (1)
  - Acute kidney injury [Recovered/Resolved]

NARRATIVE: CASE EVENT DATE: 20170712
